FAERS Safety Report 13762263 (Version 1)
Quarter: 2017Q3

REPORT INFORMATION
  Report Type: Spontaneous
  Country: GB (occurrence: GB)
  Receive Date: 20170718
  Receipt Date: 20170718
  Transmission Date: 20171127
  Serious: Yes (Other)
  Sender: FDA-Public Use
  Company Number: GB-ORION CORPORATION ORION PHARMA-TREX2017-2091

PATIENT
  Age: 29 Year
  Sex: Female
  Weight: 110 kg

DRUGS (1)
  1. METHOTREXATE (TRADE NAME UNKNOWN) [Suspect]
     Active Substance: METHOTREXATE
     Indication: RHEUMATOID ARTHRITIS
     Route: 048
     Dates: start: 20110414, end: 20120606

REACTIONS (2)
  - Infertility [Unknown]
  - Menopause [Unknown]

NARRATIVE: CASE EVENT DATE: 20120304
